FAERS Safety Report 8809862 (Version 2)
Quarter: 2012Q4

REPORT INFORMATION
  Report Type: 
  Country: DE (occurrence: DE)
  Receive Date: 20120926
  Receipt Date: 20121106
  Transmission Date: 20130627
  Serious: Yes (Other)
  Sender: FDA-Public Use
  Company Number: DE-ROCHE-1116849

PATIENT
  Age: 49 Year
  Sex: Female
  Weight: 53 kg

DRUGS (23)
  1. HERCEPTIN [Suspect]
     Indication: BREAST CANCER
     Dosage: loading dose
     Route: 042
     Dates: start: 20110816
  2. HERCEPTIN [Suspect]
     Route: 042
     Dates: start: 20110906
  3. HERCEPTIN [Suspect]
     Route: 042
     Dates: start: 20110927
  4. HERCEPTIN [Suspect]
     Route: 042
     Dates: start: 20111018
  5. HERCEPTIN [Suspect]
     Route: 042
     Dates: start: 20111108
  6. HERCEPTIN [Suspect]
     Route: 042
     Dates: start: 20111129
  7. HERCEPTIN [Suspect]
     Route: 042
     Dates: start: 20111220
  8. HERCEPTIN [Suspect]
     Route: 042
     Dates: start: 20120124
  9. HERCEPTIN [Suspect]
     Route: 042
     Dates: start: 20120215
  10. HERCEPTIN [Suspect]
     Route: 042
     Dates: start: 20120308
  11. HERCEPTIN [Suspect]
     Route: 042
     Dates: start: 20120329
  12. HERCEPTIN [Suspect]
     Route: 042
     Dates: start: 20120419
  13. HERCEPTIN [Suspect]
     Route: 042
     Dates: start: 20120511
  14. HERCEPTIN [Suspect]
     Route: 042
     Dates: start: 20120601
  15. HERCEPTIN [Suspect]
     Route: 042
     Dates: start: 20120622
  16. HERCEPTIN [Suspect]
     Route: 042
     Dates: start: 20120713
  17. HERCEPTIN [Suspect]
     Route: 042
     Dates: start: 20120803
  18. HERCEPTIN [Suspect]
     Route: 042
     Dates: start: 20120824
  19. HERCEPTIN [Suspect]
     Route: 042
     Dates: start: 20110816, end: 20120824
  20. HERCEPTIN [Suspect]
     Route: 042
     Dates: start: 20110810, end: 20120711
  21. DOCETAXEL [Concomitant]
     Route: 065
     Dates: start: 20110802
  22. DOCETAXEL [Concomitant]
     Route: 065
     Dates: start: 20110823
  23. DOCETAXEL [Concomitant]
     Route: 065
     Dates: start: 20110913

REACTIONS (3)
  - Psychotic disorder due to a general medical condition [Unknown]
  - Haematoma [Recovered/Resolved]
  - Liver function test abnormal [Not Recovered/Not Resolved]
